FAERS Safety Report 6968893-1 (Version None)
Quarter: 2010Q3

REPORT INFORMATION
  Report Type: 
  Country: None (occurrence: None)
  Receive Date: 20100907
  Receipt Date: 20100827
  Transmission Date: 20110219
  Serious: Yes (Hospitalization, Other)
  Sender: FDA-Public Use
  Company Number: US-PFIZER INC-2010075238

PATIENT
  Sex: Female

DRUGS (1)
  1. CHANTIX [Suspect]
     Indication: SMOKING CESSATION THERAPY
     Dosage: 0.5 MG, UNK
     Route: 048
     Dates: start: 20080101, end: 20080101

REACTIONS (9)
  - ANXIETY [None]
  - DEPRESSION [None]
  - FEAR [None]
  - INSOMNIA [None]
  - INTENTIONAL OVERDOSE [None]
  - MENTAL DISORDER [None]
  - NIGHTMARE [None]
  - PSYCHOTIC BEHAVIOUR [None]
  - SUICIDE ATTEMPT [None]
